FAERS Safety Report 14343578 (Version 2)
Quarter: 2018Q2

REPORT INFORMATION
  Report Type: Spontaneous
  Country: GB (occurrence: GB)
  Receive Date: 20180102
  Receipt Date: 20180517
  Transmission Date: 20180711
  Serious: Yes (Disabling)
  Sender: FDA-Public Use
  Company Number: GB-PFIZER INC-2017552834

PATIENT
  Age: 78 Year
  Sex: Male
  Weight: 115 kg

DRUGS (17)
  1. PROPOFOL. [Concomitant]
     Active Substance: PROPOFOL
     Dosage: 150 MG, UNK
  2. ATRACURIUM [Concomitant]
     Active Substance: ATRACURIUM
     Dosage: 50 MG, UNK
  3. METFORMIN [Concomitant]
     Active Substance: METFORMIN HYDROCHLORIDE
     Dosage: 2000 MG, 1X/DAY
  4. SULFASALAZINE. [Concomitant]
     Active Substance: SULFASALAZINE
     Dosage: 2000 MG, 1X/DAY
  5. ASPIRIN. [Concomitant]
     Active Substance: ASPIRIN
     Dosage: 75 MG, UNK
  6. BISOPROLOL [Concomitant]
     Active Substance: BISOPROLOL
     Dosage: 2.5 MG, UNK
  7. SIMVASTATIN. [Concomitant]
     Active Substance: SIMVASTATIN
     Dosage: 40 MG, UNK
  8. FENTANYL CITRATE. [Concomitant]
     Active Substance: FENTANYL CITRATE
     Dosage: 100 UG, UNK
  9. RANITIDINE HYDROCHLORIDE. [Concomitant]
     Active Substance: RANITIDINE HYDROCHLORIDE
     Dosage: 300 MG, 1X/DAY
  10. GLICLAZIDE [Concomitant]
     Active Substance: GLICLAZIDE
     Dosage: 80 MG, UNK
  11. ZOMORPH [Concomitant]
     Active Substance: MORPHINE SULFATE
     Indication: ANAESTHETIC PREMEDICATION
     Dosage: 10 MG, UNK
     Dates: start: 20171208
  12. PARACETAMOL [Concomitant]
     Active Substance: ACETAMINOPHEN
     Indication: ANAESTHETIC PREMEDICATION
     Dosage: 1 G, UNK
     Dates: start: 20171208
  13. MORPHINE [Concomitant]
     Active Substance: MORPHINE
     Dosage: 10 MG, UNK
  14. GABAPENTIN. [Suspect]
     Active Substance: GABAPENTIN
     Indication: ANAESTHETIC PREMEDICATION
     Dosage: 300 MG, UNK
     Route: 048
     Dates: start: 20171208, end: 20171208
  15. CANDESARTAN. [Concomitant]
     Active Substance: CANDESARTAN
     Dosage: 8 MG, UNK
  16. TRANEXAMIC ACID. [Concomitant]
     Active Substance: TRANEXAMIC ACID
     Dosage: 1 G, UNK
  17. CEFUROXIME. [Concomitant]
     Active Substance: CEFUROXIME
     Dosage: 1.5 G, UNK

REACTIONS (2)
  - Depressed level of consciousness [Recovered/Resolved]
  - Product use in unapproved indication [Recovered/Resolved]

NARRATIVE: CASE EVENT DATE: 20171208
